FAERS Safety Report 25036884 (Version 2)
Quarter: 2025Q2

REPORT INFORMATION
  Report Type: Spontaneous
  Country: JP (occurrence: JP)
  Receive Date: 20250304
  Receipt Date: 20250513
  Transmission Date: 20250716
  Serious: Yes (Life-Threatening, Hospitalization, Other)
  Sender: ELI LILLY AND COMPANY
  Company Number: JP-ELI_LILLY_AND_COMPANY-JP202502019284

PATIENT
  Age: 49 Year
  Sex: Male
  Weight: 91 kg

DRUGS (10)
  1. MOUNJARO [Suspect]
     Active Substance: TIRZEPATIDE
     Indication: Type 2 diabetes mellitus
     Route: 058
  2. MOUNJARO [Suspect]
     Active Substance: TIRZEPATIDE
     Route: 058
     Dates: end: 20241216
  3. MOUNJARO [Suspect]
     Active Substance: TIRZEPATIDE
     Route: 058
  4. OSELTAMIVIR [Suspect]
     Active Substance: OSELTAMIVIR
     Indication: Influenza
     Dosage: 75 MG, BID
     Route: 048
     Dates: start: 20241218, end: 20241223
  5. VOGLIBOSE [Concomitant]
     Active Substance: VOGLIBOSE
     Route: 048
     Dates: end: 20241221
  6. METFORMIN HYDROCHLORIDE [Concomitant]
     Active Substance: METFORMIN HYDROCHLORIDE
     Route: 048
     Dates: end: 20241221
  7. DAPAGLIFLOZIN [Concomitant]
     Active Substance: DAPAGLIFLOZIN
     Route: 048
     Dates: end: 20241221
  8. PITAVASTATIN CALCIUM [Concomitant]
     Active Substance: PITAVASTATIN CALCIUM
     Route: 048
     Dates: end: 20241221
  9. PEMAFIBRATE [Concomitant]
     Active Substance: PEMAFIBRATE
     Route: 048
     Dates: end: 20241221
  10. INSULIN GLARGINE [Concomitant]
     Active Substance: INSULIN GLARGINE
     Route: 058
     Dates: end: 20241221

REACTIONS (17)
  - Acute respiratory distress syndrome [Unknown]
  - Endotracheal intubation complication [Unknown]
  - Cardio-respiratory arrest [Unknown]
  - Diabetic ketoacidosis [Recovered/Resolved]
  - Pneumonia [Recovered/Resolved]
  - Renal disorder [Recovering/Resolving]
  - Sepsis [Recovered/Resolved]
  - Cardiac failure congestive [Unknown]
  - Oedema [Unknown]
  - Blood albumin decreased [Unknown]
  - Dehydration [Unknown]
  - Blood pressure decreased [Unknown]
  - Influenza [Unknown]
  - Weight decreased [Recovered/Resolved]
  - Decreased appetite [Recovered/Resolved]
  - Malaise [Recovered/Resolved]
  - Diarrhoea [Unknown]

NARRATIVE: CASE EVENT DATE: 20241218
